FAERS Safety Report 11624376 (Version 1)
Quarter: 2015Q4

REPORT INFORMATION
  Report Type: Report from Study
  Country: CA (occurrence: CA)
  Receive Date: 20151013
  Receipt Date: 20151013
  Transmission Date: 20160304
  Serious: Yes (Other)
  Sender: FDA-Public Use
  Company Number: CA-ABBVIE-15K-028-1477192-00

PATIENT
  Sex: Female

DRUGS (1)
  1. HUMIRA [Suspect]
     Active Substance: ADALIMUMAB
     Indication: CROHN^S DISEASE
     Route: 058
     Dates: start: 20120705, end: 20150831

REACTIONS (5)
  - Lung disorder [Not Recovered/Not Resolved]
  - Postoperative wound complication [Not Recovered/Not Resolved]
  - Postoperative fever [Not Recovered/Not Resolved]
  - Intestinal stenosis [Unknown]
  - Abdominal adhesions [Unknown]

NARRATIVE: CASE EVENT DATE: 2015
